FAERS Safety Report 18313260 (Version 2)
Quarter: 2020Q4

REPORT INFORMATION
  Report Type: Spontaneous
  Country: FR (occurrence: FR)
  Receive Date: 20200925
  Receipt Date: 20201105
  Transmission Date: 20210113
  Serious: Yes (Hospitalization)
  Sender: FDA-Public Use
  Company Number: FR-CADILA HEALTHCARE LIMITED-FR-ZYDUS-022825

PATIENT

DRUGS (10)
  1. AUGMENTIN [Suspect]
     Active Substance: AMOXICILLIN\CLAVULANATE POTASSIUM
     Indication: INFECTION
     Dosage: 6 GRAM,2 G 3 X / DAY,(INTERVAL :1 DAYS)
     Route: 048
     Dates: start: 20170127
  2. AMLODIPINE [Suspect]
     Active Substance: AMLODIPINE BESYLATE
     Indication: HYPERTENSION
     Dosage: 5 MILLIGRAM,5 MG / DAY,(INTERVAL :1 DAYS)
     Route: 048
     Dates: start: 20170126
  3. HYTRINE [Suspect]
     Active Substance: TERAZOSIN HYDROCHLORIDE
     Indication: BENIGN PROSTATIC HYPERPLASIA
     Dosage: 2 MILLIGRAM,1 MG MORNING AND EVENING,(INTERVAL :1 DAYS)
     Route: 048
     Dates: end: 20170126
  4. CLOPIDOGREL [Suspect]
     Active Substance: CLOPIDOGREL BISULFATE
     Indication: PERIPHERAL ARTERIAL OCCLUSIVE DISEASE
     Dosage: 75 MILLIGRAM,75 MG/DAY,(INTERVAL :1 DAYS)
     Route: 048
  5. PARACETAMOL [Suspect]
     Active Substance: ACETAMINOPHEN
     Indication: PAIN
     Dosage: IF NECESSARY
     Route: 048
  6. KARDEGIC [Suspect]
     Active Substance: ASPIRIN DL-LYSINE
     Indication: POSTINFARCTION ANGINA
     Dosage: 75 MILLIGRAM,75 MG/DAY,(INTERVAL :1 DAYS)
     Route: 048
     Dates: start: 20170126
  7. XATRAL [Suspect]
     Active Substance: ALFUZOSIN
     Indication: BENIGN PROSTATIC HYPERPLASIA
     Dosage: 10 MILLIGRAM,10 MG/DAY,(INTERVAL :1 DAYS)
     Route: 048
     Dates: start: 20170126
  8. BISOPROLOL HEMIFUMARATE [Suspect]
     Active Substance: BISOPROLOL FUMARATE
     Indication: HYPERTENSION
     Dosage: 1.25 MILLIGRAM,1.25 MG / DAY,(INTERVAL :1 DAYS)
     Route: 047
  9. PRODINAN [Suspect]
     Active Substance: HERBALS\SAW PALMETTO
     Indication: BENIGN PROSTATIC HYPERPLASIA
     Dosage: 320 MILLIGRAM,150 MG MORNING AND EVENING,(INTERVAL :1 DAYS)
     Route: 048
     Dates: end: 20170126
  10. PERINDOPRIL [Suspect]
     Active Substance: PERINDOPRIL
     Indication: HYPERTENSION
     Dosage: 2 MILLIGRAM,2MG / DAY,(INTERVAL :1 DAYS)
     Route: 048

REACTIONS (1)
  - Cholestasis [Not Recovered/Not Resolved]

NARRATIVE: CASE EVENT DATE: 20170126
